FAERS Safety Report 21570793 (Version 1)
Quarter: 2022Q4

REPORT INFORMATION
  Report Type: Spontaneous
  Country: NZ (occurrence: NZ)
  Receive Date: 20221109
  Receipt Date: 20221109
  Transmission Date: 20230113
  Serious: Yes (Death)
  Sender: FDA-Public Use
  Company Number: NZ-MYLANLABS-2022M1043253

PATIENT
  Age: 38 Year
  Sex: Female

DRUGS (1)
  1. CLOZARIL [Suspect]
     Active Substance: CLOZAPINE
     Indication: Schizophrenia
     Dosage: UNK
     Route: 048
     Dates: start: 20050929, end: 20221002

REACTIONS (8)
  - Respiratory failure [Fatal]
  - Haemoglobin decreased [Unknown]
  - Mean cell volume abnormal [Unknown]
  - Mean cell haemoglobin decreased [Unknown]
  - Neutrophil count increased [Unknown]
  - Eosinophil count increased [Unknown]
  - Platelet count increased [Unknown]
  - White blood cell count increased [Unknown]

NARRATIVE: CASE EVENT DATE: 20220607
